FAERS Safety Report 8493649-0 (Version None)
Quarter: 2012Q3

REPORT INFORMATION
  Report Type: 
  Country: None (occurrence: None)
  Receive Date: 20120706
  Receipt Date: 20120626
  Transmission Date: 20120928
  Serious: Yes (Death, Hospitalization)
  Sender: FDA-Public Use
  Company Number: NL-BAXTER-2012BAX009752

PATIENT
  Sex: Male
  Weight: 80 kg

DRUGS (6)
  1. FLUCONAZOLE [Concomitant]
     Indication: PROPHYLAXIS
     Route: 065
  2. VALACICLOVIR [Concomitant]
     Indication: PROPHYLAXIS
     Route: 065
  3. CYCLOPHOSPHAMIDE [Suspect]
     Indication: MULTIPLE MYELOMA
     Route: 042
     Dates: start: 20120504
  4. DEXAMETHASONE [Concomitant]
     Route: 048
     Dates: start: 20120504
  5. VELCADE [Suspect]
     Indication: MULTIPLE MYELOMA
     Route: 042
     Dates: start: 20120504
  6. COTRIM [Concomitant]
     Indication: PROPHYLAXIS
     Route: 065

REACTIONS (4)
  - LEUKOPENIA [None]
  - COLITIS [None]
  - THROMBOCYTOPENIA [None]
  - RENAL FAILURE ACUTE [None]
